FAERS Safety Report 23697763 (Version 6)
Quarter: 2024Q3

REPORT INFORMATION
  Report Type: Spontaneous
  Country: US (occurrence: US)
  Receive Date: 20240402
  Receipt Date: 20240911
  Transmission Date: 20241016
  Serious: No
  Sender: PFIZER
  Company Number: US-PFIZER INC-202400072241

PATIENT
  Age: 12 Year
  Sex: Female
  Weight: 30.94 kg

DRUGS (2)
  1. GENOTROPIN [Suspect]
     Active Substance: SOMATROPIN
     Indication: Turner^s syndrome
     Dosage: 1.6 MG, 6 DAY/WK
  2. ESTROGENS [Concomitant]
     Active Substance: ESTROGENS
     Indication: Turner^s syndrome
     Dosage: VIA PATCH
     Dates: start: 2023

REACTIONS (2)
  - Poor quality device used [Unknown]
  - Device leakage [Unknown]
